FAERS Safety Report 18367366 (Version 4)
Quarter: 2020Q4

REPORT INFORMATION
  Report Type: Spontaneous
  Country: JP (occurrence: JP)
  Receive Date: 20201009
  Receipt Date: 20201211
  Transmission Date: 20210114
  Serious: Yes (Death, Hospitalization, Other)
  Sender: FDA-Public Use
  Company Number: JP-009507513-2009JPN000439J

PATIENT
  Age: 65 Year
  Sex: Male
  Weight: 58 kg

DRUGS (6)
  1. KEYTRUDA [Suspect]
     Active Substance: PEMBROLIZUMAB
     Indication: HEAD AND NECK CANCER STAGE IV
     Dosage: 200 MILLIGRAM, Q3W
     Route: 041
     Dates: start: 20200526, end: 20200728
  2. MAGMITT [Concomitant]
     Active Substance: MAGNESIUM OXIDE
     Dosage: 330 MILLIGRAM, UNKNOWN
     Route: 048
     Dates: start: 201910
  3. PROMAC [Concomitant]
     Active Substance: NITROFURANTOIN
     Indication: TASTE DISORDER
     Dosage: 75 MILLIGRAM, QD
     Route: 048
     Dates: start: 20190926
  4. AMLODIPINE [Concomitant]
     Active Substance: AMLODIPINE BESYLATE
     Indication: HYPERTENSION
     Dosage: 5 MILLIGRAM, QD
     Route: 048
     Dates: start: 20190629
  5. FLUOROURACIL. [Concomitant]
     Active Substance: FLUOROURACIL
     Indication: HEAD AND NECK CANCER STAGE IV
     Dosage: 1620MG(4 DAYS),4 TIMES/3 WEEKS
     Route: 041
     Dates: start: 20200526, end: 20200710
  6. CARBOPLATIN. [Concomitant]
     Active Substance: CARBOPLATIN
     Indication: HEAD AND NECK CANCER STAGE IV
     Dosage: 310 MILLIGRAM, Q3W
     Route: 041
     Dates: start: 20200526, end: 20200707

REACTIONS (4)
  - Prerenal failure [Fatal]
  - Neutrophil count decreased [Recovered/Resolved]
  - Hyperkalaemia [Not Recovered/Not Resolved]
  - Hepatitis fulminant [Fatal]

NARRATIVE: CASE EVENT DATE: 2020
